FAERS Safety Report 6249020-5 (Version None)
Quarter: 2009Q2

REPORT INFORMATION
  Report Type: 
  Country: None (occurrence: None)
  Receive Date: 20090625
  Receipt Date: 20090615
  Transmission Date: 20091009
  Serious: Yes (Hospitalization)
  Sender: FDA-Public Use
  Company Number: 2009US001220

PATIENT
  Age: 24 Year
  Sex: Male

DRUGS (16)
  1. PROGRAF [Suspect]
     Indication: RENAL TRANSPLANT
     Dosage: ORAL
     Route: 048
     Dates: start: 20090331
  2. [NO SUSPECT PRODUCT]([NO SUSPECT PRODUCT]) [Suspect]
     Indication: RENAL TRANSPLANT
  3. LOVENOX [Concomitant]
  4. ASPIRIN [Concomitant]
  5. CLONIDINE [Concomitant]
  6. PLAVIX [Concomitant]
  7. DIFLUCAN [Concomitant]
  8. PROTONIX [Concomitant]
  9. CELLCEPT [Concomitant]
  10. BACTRIM [Concomitant]
  11. CARDENE [Concomitant]
  12. HYDRALAZINE HCL [Concomitant]
  13. SENNA (SENNOSIDE A+B) [Concomitant]
  14. MULTIVITAMIN [Concomitant]
  15. CIPRO [Concomitant]
  16. CYTOVENE [Concomitant]

REACTIONS (4)
  - DEHYDRATION [None]
  - DIARRHOEA [None]
  - HYPOTENSION [None]
  - PNEUMOMEDIASTINUM [None]
